FAERS Safety Report 23195173 (Version 3)
Quarter: 2024Q1

REPORT INFORMATION
  Report Type: Other
  Country: US (occurrence: None)
  Receive Date: 20231117
  Receipt Date: 20240228
  Transmission Date: 20240409
  Serious: Yes (Hospitalization, Other)
  Sender: FDA-Public Use
  Company Number: US-ROCHE-3451589

PATIENT
  Age: 69 Year
  Sex: Female
  Weight: 55.842 kg

DRUGS (12)
  1. RITUXAN [Suspect]
     Active Substance: RITUXIMAB
     Indication: Rheumatoid arthritis
     Dosage: DATE OF TREATMENT:  04/MAR/2021, 18/MAR/2021, 22/SEP/2021, 06/OCT/2021, 25/APR/2022, 09/MAY/2022, 07
     Route: 041
  2. VITAMIN D3 [Concomitant]
     Active Substance: CHOLECALCIFEROL
  3. CYANOCOBALAMIN [Concomitant]
     Active Substance: CYANOCOBALAMIN
  4. FOLVITE [Concomitant]
     Active Substance: FOLIC ACID
  5. COZAAR [Concomitant]
     Active Substance: LOSARTAN POTASSIUM
  6. METHOTREXATE [Concomitant]
     Active Substance: METHOTREXATE
  7. NIRMATRELVIR\RITONAVIR [Concomitant]
     Active Substance: NIRMATRELVIR\RITONAVIR
  8. MAXITROL [Concomitant]
     Active Substance: DEXAMETHASONE\NEOMYCIN SULFATE\POLYMYXIN B SULFATE
  9. FORTEO [Concomitant]
     Active Substance: TERIPARATIDE
  10. EVUSHELD [Concomitant]
     Active Substance: CILGAVIMAB\TIXAGEVIMAB
  11. LOSARTAN [Concomitant]
     Active Substance: LOSARTAN
  12. FOLIC ACID [Concomitant]
     Active Substance: FOLIC ACID

REACTIONS (13)
  - Spinal compression fracture [Recovered/Resolved]
  - Postoperative ileus [Unknown]
  - Malignant hypertensive heart disease [Unknown]
  - Dupuytren^s contracture [Unknown]
  - Spinal osteoarthritis [Unknown]
  - Bone density abnormal [Unknown]
  - Antinuclear antibody positive [Unknown]
  - Conjunctivitis bacterial [Unknown]
  - Balance disorder [Unknown]
  - Fall [Unknown]
  - Otorrhoea [Unknown]
  - Iron deficiency anaemia [Unknown]
  - Vitamin D deficiency [Unknown]

NARRATIVE: CASE EVENT DATE: 20230101
